FAERS Safety Report 6955306-9 (Version None)
Quarter: 2010Q3

REPORT INFORMATION
  Report Type: 
  Country: None (occurrence: None)
  Receive Date: 20100826
  Receipt Date: 20100811
  Transmission Date: 20110219
  Serious: Yes (Other)
  Sender: FDA-Public Use
  Company Number: DKLU1064431

PATIENT

DRUGS (2)
  1. COSMEGEN [Suspect]
     Indication: RENAL NEOPLASM
  2. VINCRISTINE (VICRISTINE) [Suspect]
     Indication: RENAL NEOPLASM

REACTIONS (2)
  - DECREASED APPETITE [None]
  - MALNUTRITION [None]
